FAERS Safety Report 14832866 (Version 1)
Quarter: 2018Q2

REPORT INFORMATION
  Report Type: Spontaneous
  Country: FR (occurrence: FR)
  Receive Date: 20180501
  Receipt Date: 20180501
  Transmission Date: 20180711
  Serious: Yes (Hospitalization, Other)
  Sender: FDA-Public Use
  Company Number: PHHY2017FR167038

PATIENT
  Age: 63 Year
  Sex: Male

DRUGS (4)
  1. TACROLIMUS. [Suspect]
     Active Substance: TACROLIMUS
     Indication: LUNG TRANSPLANT
     Dosage: SERUM TROUGH LEVESL BETWEEN 7 AND 8 UG/L
     Route: 065
  2. MYCOPHENOLATE MOFETIL. [Suspect]
     Active Substance: MYCOPHENOLATE MOFETIL
     Indication: IMMUNOSUPPRESSANT DRUG THERAPY
  3. MYCOPHENOLATE MOFETIL. [Suspect]
     Active Substance: MYCOPHENOLATE MOFETIL
     Indication: LUNG TRANSPLANT
     Dosage: 1000 MG, BID
     Route: 065
  4. TACROLIMUS. [Suspect]
     Active Substance: TACROLIMUS
     Indication: IMMUNOSUPPRESSANT DRUG THERAPY
     Dosage: SERUM TROUGH LEVELS BETWEEN 5 AND 6 UG/L
     Route: 065

REACTIONS (13)
  - Brain abscess [Recovering/Resolving]
  - Dysmetria [Unknown]
  - Lung transplant rejection [Unknown]
  - Transient aphasia [Unknown]
  - Lymphopenia [Unknown]
  - Aphasia [Unknown]
  - Phaehyphomycosis [Unknown]
  - Fungal infection [Recovering/Resolving]
  - Headache [Unknown]
  - Ataxia [Unknown]
  - Gait disturbance [Unknown]
  - Cerebellar syndrome [Unknown]
  - Product use in unapproved indication [Unknown]
